FAERS Safety Report 13524115 (Version 1)
Quarter: 2017Q2

REPORT INFORMATION
  Report Type: Spontaneous
  Country: US (occurrence: US)
  Receive Date: 20170508
  Receipt Date: 20170508
  Transmission Date: 20170830
  Serious: No
  Sender: FDA-Public Use
  Company Number: US-BAUSCH-BL-2016-026798

PATIENT
  Age: 67 Year
  Sex: Female

DRUGS (1)
  1. OFLOXACIN OTIC [Suspect]
     Active Substance: OFLOXACIN
     Indication: INFECTION
     Dosage: 1 DROP IN LEFT EYE FOUR TIMES A DAY
     Route: 001
     Dates: start: 20161024, end: 20161031

REACTIONS (2)
  - Incorrect route of drug administration [Unknown]
  - Eye irritation [Unknown]

NARRATIVE: CASE EVENT DATE: 20161024
